FAERS Safety Report 20120797 (Version 4)
Quarter: 2022Q1

REPORT INFORMATION
  Report Type: Report from Study
  Country: IL (occurrence: IL)
  Receive Date: 20211126
  Receipt Date: 20220119
  Transmission Date: 20220423
  Serious: Yes (Hospitalization)
  Sender: FDA-Public Use
  Company Number: IL-ABBVIE-21K-082-3765318-00

PATIENT
  Age: 67 Year
  Sex: Male

DRUGS (7)
  1. CARBIDOPA\LEVODOPA [Suspect]
     Active Substance: CARBIDOPA\LEVODOPA
     Indication: Parkinson^s disease
     Route: 050
     Dates: start: 20160604
  2. CARBIDOPA\LEVODOPA [Suspect]
     Active Substance: CARBIDOPA\LEVODOPA
     Dosage: MORNING DOSAGE(ML)  12.0 , CONTINUOUS DOSAGE (ML/H)  2.1 , EXTRA DOSAGE (ML)  1.8
     Route: 050
  3. CARBIDOPA\LEVODOPA [Suspect]
     Active Substance: CARBIDOPA\LEVODOPA
     Dosage: MORNING DOSAGE(ML) 12.0 , CONTINUOUS DOSAGE (ML/H) 2.8 , EXTRA DOSAGE (ML) 1.8
     Route: 050
  4. CARBIDOPA\LEVODOPA [Suspect]
     Active Substance: CARBIDOPA\LEVODOPA
     Dosage: MORNING DOSAGE(ML) 12.0 , CONTINUOUS DOSAGE (ML/H) 3.1 , EXTRA DOSAGE (ML) 1.8
     Route: 050
  5. INSULIN NOS [Concomitant]
     Active Substance: INSULIN NOS
     Indication: Diabetes mellitus
  6. ATENOLOL [Concomitant]
     Active Substance: ATENOLOL
     Indication: Heart rate increased
  7. LEVOTHYROXINE [Concomitant]
     Active Substance: LEVOTHYROXINE
     Indication: Product used for unknown indication

REACTIONS (13)
  - Blood glucose increased [Recovered/Resolved]
  - Heart rate decreased [Unknown]
  - Diabetes mellitus [Recovered/Resolved]
  - Malaise [Recovered/Resolved]
  - Hypertension [Unknown]
  - Poor quality sleep [Not Recovered/Not Resolved]
  - Initial insomnia [Unknown]
  - Device difficult to use [Not Recovered/Not Resolved]
  - On and off phenomenon [Unknown]
  - Tremor [Unknown]
  - Therapeutic product effect incomplete [Unknown]
  - Diabetes mellitus [Recovered/Resolved]
  - Diabetic wound [Recovering/Resolving]

NARRATIVE: CASE EVENT DATE: 20211109
